FAERS Safety Report 22652730 (Version 1)
Quarter: 2023Q2

REPORT INFORMATION
  Report Type: Report from Study
  Country: US (occurrence: US)
  Receive Date: 20230629
  Receipt Date: 20230629
  Transmission Date: 20230722
  Serious: Yes (Hospitalization, Other)
  Sender: FDA-Public Use
  Company Number: US-APOTEX-2022AP015108

PATIENT
  Age: 55 Year
  Sex: Female
  Weight: 63.492 kg

DRUGS (1)
  1. FLUVOXAMINE [Suspect]
     Active Substance: FLUVOXAMINE
     Indication: COVID-19
     Dosage: 100 MILLIGRAM
     Route: 048
     Dates: start: 20221020

REACTIONS (1)
  - Diverticulitis intestinal perforated [Recovered/Resolved]

NARRATIVE: CASE EVENT DATE: 20221025
